FAERS Safety Report 6766369-8 (Version None)
Quarter: 2010Q2

REPORT INFORMATION
  Report Type: 
  Country: None (occurrence: None)
  Receive Date: 20100611
  Receipt Date: 20100603
  Transmission Date: 20101027
  Serious: Yes (Death, Other)
  Sender: FDA-Public Use
  Company Number: US-AMGEN-KDL416468

PATIENT
  Sex: Female

DRUGS (7)
  1. PROCRIT [Suspect]
     Indication: DRUG USE FOR UNKNOWN INDICATION
     Route: 058
     Dates: start: 20080101
  2. SYNTHROID [Concomitant]
     Dates: end: 20100201
  3. MORPHINE [Concomitant]
     Dates: end: 20100201
  4. CRESTOR [Concomitant]
     Dates: end: 20100201
  5. LASIX [Concomitant]
     Dates: end: 20100201
  6. REGLAN [Concomitant]
     Dates: end: 20100201
  7. COMPAZINE [Concomitant]
     Dates: end: 20100201

REACTIONS (1)
  - DEATH [None]
